FAERS Safety Report 23330211 (Version 1)
Quarter: 2023Q4

REPORT INFORMATION
  Report Type: Spontaneous
  Country: US (occurrence: US)
  Receive Date: 20231222
  Receipt Date: 20231222
  Transmission Date: 20240109
  Serious: No
  Sender: FDA-Public Use
  Company Number: US-009507513-2312USA007873

PATIENT
  Age: 52 Year
  Sex: Male

DRUGS (1)
  1. TEMODAR [Suspect]
     Active Substance: TEMOZOLOMIDE
     Indication: Pituitary cancer metastatic
     Dosage: 150 MG/M2 FOR 5 CONSECUTIVE DAYS ON A 28-D CYCLE
     Route: 048
     Dates: start: 201701

REACTIONS (1)
  - Off label use [Unknown]

NARRATIVE: CASE EVENT DATE: 20170101
